FAERS Safety Report 4807127-0 (Version None)
Quarter: 2005Q4

REPORT INFORMATION
  Report Type: 
  Country: None (occurrence: None)
  Receive Date: 20051024
  Receipt Date: 20051013
  Transmission Date: 20060501
  Serious: Yes (Hospitalization)
  Sender: FDA-Public Use
  Company Number: FR-GLAXOSMITHKLINE-B0397931A

PATIENT
  Age: 59 Year
  Sex: Male
  Weight: 77 kg

DRUGS (6)
  1. AUGMENTIN '125' [Suspect]
     Dosage: 3G PER DAY
     Route: 048
     Dates: start: 20050914, end: 20050926
  2. LODALES [Concomitant]
     Route: 065
  3. ISOPTIN [Concomitant]
     Route: 065
  4. SECTRAL [Concomitant]
     Route: 065
  5. AMAREL [Concomitant]
     Route: 065
  6. TRAMADOL HCL [Concomitant]
     Route: 065

REACTIONS (5)
  - ALANINE AMINOTRANSFERASE INCREASED [None]
  - ASPARTATE AMINOTRANSFERASE INCREASED [None]
  - BLOOD ALKALINE PHOSPHATASE INCREASED [None]
  - CHOLESTASIS [None]
  - GAMMA-GLUTAMYLTRANSFERASE INCREASED [None]
